FAERS Safety Report 16114400 (Version 1)
Quarter: 2019Q1

REPORT INFORMATION
  Report Type: Spontaneous
  Country: ES (occurrence: ES)
  Receive Date: 20190325
  Receipt Date: 20190325
  Transmission Date: 20190418
  Serious: No
  Sender: FDA-Public Use
  Company Number: ES-ALLERGAN-1912658US

PATIENT
  Age: 38 Year
  Sex: Female

DRUGS (1)
  1. ASENAPINE MALEATE - BP [Suspect]
     Active Substance: ASENAPINE MALEATE
     Indication: PRODUCT USED FOR UNKNOWN INDICATION
     Dosage: UNK
     Route: 048

REACTIONS (4)
  - Oral pruritus [Recovered/Resolved]
  - Skin exfoliation [Recovered/Resolved]
  - Vulvovaginal pruritus [Recovered/Resolved]
  - Pruritus [Recovered/Resolved]
